FAERS Safety Report 24151397 (Version 1)
Quarter: 2024Q3

REPORT INFORMATION
  Report Type: Spontaneous
  Country: FR (occurrence: FR)
  Receive Date: 20240730
  Receipt Date: 20240730
  Transmission Date: 20241017
  Serious: Yes (Other)
  Sender: NOVARTIS
  Company Number: FR-002147023-NVSC2024FR153852

PATIENT
  Sex: Male

DRUGS (1)
  1. ENTRESTO [Suspect]
     Active Substance: SACUBITRIL\VALSARTAN
     Indication: Product used for unknown indication
     Dosage: UNK MG, BID (24/26MG) ONE TABLET  IN THE  MORNING  AND IN THE  EVENING
     Route: 065

REACTIONS (2)
  - Transaminases increased [Unknown]
  - Rash [Unknown]
